FAERS Safety Report 11579819 (Version 4)
Quarter: 2016Q1

REPORT INFORMATION
  Report Type: Spontaneous
  Country: AU (occurrence: AU)
  Receive Date: 20150930
  Receipt Date: 20160217
  Transmission Date: 20160525
  Serious: Yes (Other)
  Sender: FDA-Public Use
  Company Number: AU-PFIZER INC-2015320735

PATIENT
  Age: 62 Year
  Sex: Female
  Weight: 98 kg

DRUGS (17)
  1. ENDONE [Concomitant]
     Active Substance: OXYCODONE HYDROCHLORIDE
     Dosage: 5 MG, DAILY AS NEEDED
  2. GABAPENTIN. [Concomitant]
     Active Substance: GABAPENTIN
     Dosage: 300 MG, 3X/DAY
  3. GENTEAL GELDROPS [Concomitant]
     Dosage: UNK, AS NEEDED
  4. MOBIC [Concomitant]
     Active Substance: MELOXICAM
     Dosage: 15 MG, DAILY WITH MEALS
  5. NOTEN [Concomitant]
     Active Substance: ATENOLOL
     Dosage: 50 MG, 2X/DAY
  6. PARIET [Concomitant]
     Active Substance: RABEPRAZOLE SODIUM
     Dosage: 20 MG IN THE MORNING
  7. PRISTIQ EXTENDED RELEASE [Suspect]
     Active Substance: DESVENLAFAXINE SUCCINATE
     Indication: DEPRESSION
     Dosage: UNK
     Dates: start: 2009
  8. PRISTIQ EXTENDED RELEASE [Suspect]
     Active Substance: DESVENLAFAXINE SUCCINATE
     Dosage: 50 MG, DAILY
  9. ENDEP [Concomitant]
     Active Substance: AMITRIPTYLINE HYDROCHLORIDE
     Dosage: 10 MG BEFORE BED
  10. MONOPRIL [Concomitant]
     Active Substance: FOSINOPRIL SODIUM
     Dosage: 20 MG IN THE MORNING
  11. OXYCONTIN [Concomitant]
     Active Substance: OXYCODONE HYDROCHLORIDE
     Dosage: 30 MG, 2X/DAY
  12. PANADOL [Concomitant]
     Active Substance: ACETAMINOPHEN
     Dosage: 2 DF, 3X/DAY
  13. OSTELIN VITAMIN D + CALCIUM [Concomitant]
     Dosage: 2 TABLETS BEFORE BED
  14. ZOCOR [Concomitant]
     Active Substance: SIMVASTATIN
     Dosage: 20 MG BEFORE BED
  15. PRISTIQ EXTENDED RELEASE [Suspect]
     Active Substance: DESVENLAFAXINE SUCCINATE
     Dosage: 200 MG, UNK
     Dates: start: 2011
  16. ALDACTONE [Concomitant]
     Active Substance: SPIRONOLACTONE
     Dosage: 50 MG (TWO  25 MG), DAILY (IN THE MORNING)
  17. SEREPAX [Concomitant]
     Active Substance: OXAZEPAM
     Dosage: 30 MG BEFORE BED

REACTIONS (8)
  - Breast cancer [Unknown]
  - Disease recurrence [Recovered/Resolved]
  - Drug dose omission [Unknown]
  - Hyperhidrosis [Unknown]
  - Drug withdrawal syndrome [Unknown]
  - Panic attack [Recovered/Resolved]
  - Condition aggravated [Unknown]
  - Depression [Unknown]

NARRATIVE: CASE EVENT DATE: 20150815
